FAERS Safety Report 17782664 (Version 1)
Quarter: 2020Q2

REPORT INFORMATION
  Report Type: Spontaneous
  Country: US (occurrence: US)
  Receive Date: 20200514
  Receipt Date: 20200514
  Transmission Date: 20200714
  Serious: Yes (Other)
  Sender: FDA-Public Use
  Company Number: None

PATIENT
  Age: 76 Year
  Sex: Male
  Weight: 90.72 kg

DRUGS (2)
  1. ANAVIP [Concomitant]
     Active Substance: PIT VIPER (CROTALINAE) IMMUNE GLOBULIN ANTIVENIN (EQUINE)
     Dates: start: 20200513, end: 20200513
  2. ANAVIP [Suspect]
     Active Substance: PIT VIPER (CROTALINAE) IMMUNE GLOBULIN ANTIVENIN (EQUINE)

REACTIONS (2)
  - Therapy change [None]
  - Drug hypersensitivity [None]

NARRATIVE: CASE EVENT DATE: 20200513
